FAERS Safety Report 7783057-X (Version None)
Quarter: 2011Q3

REPORT INFORMATION
  Report Type: 
  Country: None (occurrence: None)
  Receive Date: 20110928
  Receipt Date: 20110923
  Transmission Date: 20111222
  Serious: No
  Sender: FDA-Public Use
  Company Number: US-PFIZER INC-2011227505

PATIENT
  Sex: Female
  Weight: 57.1 kg

DRUGS (3)
  1. PREMARIN [Suspect]
     Indication: UTERINE LEIOMYOMA
     Dosage: 0.625 MG, 1X/DAY
     Route: 048
     Dates: start: 20110916, end: 20110921
  2. PREMARIN [Suspect]
     Indication: MENOPAUSE
  3. PROVERA [Concomitant]
     Dosage: UNK

REACTIONS (6)
  - ILL-DEFINED DISORDER [None]
  - ABDOMINAL DISCOMFORT [None]
  - EATING DISORDER [None]
  - ABDOMINAL DISTENSION [None]
  - ABDOMINAL PAIN UPPER [None]
  - PAIN [None]
